FAERS Safety Report 12347236 (Version 1)
Quarter: 2016Q2

REPORT INFORMATION
  Report Type: Spontaneous
  Country: FR (occurrence: FR)
  Receive Date: 20160509
  Receipt Date: 20160509
  Transmission Date: 20160815
  Serious: Yes (Hospitalization, Other)
  Sender: FDA-Public Use
  Company Number: FR-PFIZER INC-2016239479

PATIENT
  Age: 74 Year
  Sex: Male
  Weight: 75 kg

DRUGS (8)
  1. XANAX [Suspect]
     Active Substance: ALPRAZOLAM
     Indication: ANXIETY
     Dosage: 0.25 MG, 1X/DAY IN THE EVENING
     Route: 048
  2. LEXOMIL ROCHE [Suspect]
     Active Substance: BROMAZEPAM
     Indication: ANXIETY
     Dosage: 1/2 DF OF 6 MG IN THE MORNING, 1/2 DF OF 6 MG AT NOON, 3/4 DF OF 6 MG IN THE EVENING
     Route: 048
  3. NOCTAMIDE [Suspect]
     Active Substance: LORMETAZEPAM
     Indication: INSOMNIA
     Dosage: 2 MG, 1X/DAY IN THE EVENING
     Route: 048
  4. PRAVASTATIN SODIUM. [Concomitant]
     Active Substance: PRAVASTATIN SODIUM
     Indication: HYPERCHOLESTEROLAEMIA
     Dosage: 40 MG, 1X/DAY IN THE EVENING
     Route: 048
  5. PREVISCAN /00789001/ [Concomitant]
     Active Substance: FLUINDIONE
     Indication: MYOCARDIAL INFARCTION
     Dosage: 1 DF OF 20 MG IN THE EVENING IN ALTERNANCE WITH 1.5 DF OF 20 MG IN THE EVENING THE OTHER DAY
     Route: 048
  6. TEGRETOL [Concomitant]
     Active Substance: CARBAMAZEPINE
     Indication: EPILEPSY
     Dosage: 1 DF OF 400 MG IN THE MORNING AND 2 DF OF 400 MG IN THE EVENING
     Route: 048
  7. ACEBUTOLOL HYDROCHLORIDE. [Concomitant]
     Active Substance: ACEBUTOLOL HYDROCHLORIDE
     Indication: HYPERTENSION
     Dosage: 200 MG, 1X/DAY IN THE MORNING
     Route: 048
  8. EPITOMAX [Concomitant]
     Active Substance: TOPIRAMATE
     Indication: EPILEPSY
     Dosage: 50 MG, 2X/DAY IN THE MORNING AND IN THE EVENING
     Route: 048

REACTIONS (4)
  - Vertigo [Unknown]
  - Fall [Recovered/Resolved]
  - Malaise [Unknown]
  - Loss of consciousness [Unknown]

NARRATIVE: CASE EVENT DATE: 20160204
